FAERS Safety Report 7432664-2 (Version None)
Quarter: 2011Q2

REPORT INFORMATION
  Report Type: 
  Country: None (occurrence: None)
  Receive Date: 20110422
  Receipt Date: 20110411
  Transmission Date: 20111010
  Serious: Yes (Hospitalization, Other)
  Sender: FDA-Public Use
  Company Number: US-ROCHE-751338

PATIENT
  Sex: Male
  Weight: 68 kg

DRUGS (3)
  1. ACCUTANE [Suspect]
     Route: 048
     Dates: start: 20050322, end: 20050502
  2. ACCUTANE [Suspect]
     Route: 048
     Dates: start: 20041206
  3. ACCUTANE [Suspect]
     Route: 048
     Dates: start: 20050121

REACTIONS (10)
  - CROHN'S DISEASE [None]
  - MYALGIA [None]
  - INFLAMMATORY BOWEL DISEASE [None]
  - ERYTHEMA NODOSUM [None]
  - ANAL FISSURE [None]
  - ANAL FISTULA [None]
  - DEPRESSION [None]
  - ARTHRALGIA [None]
  - DRY SKIN [None]
  - SKIN FISSURES [None]
